FAERS Safety Report 7559046-7 (Version None)
Quarter: 2011Q2

REPORT INFORMATION
  Report Type: 
  Country: None (occurrence: None)
  Receive Date: 20110621
  Receipt Date: 20110616
  Transmission Date: 20111010
  Serious: No
  Sender: FDA-Public Use
  Company Number: US-PFIZER INC-2011133823

PATIENT
  Sex: Female

DRUGS (2)
  1. XANAX [Suspect]
     Indication: SLEEP DISORDER
     Dosage: 1 MG, UNK
  2. XANAX [Suspect]
     Dosage: 0.5 MG, UNK

REACTIONS (1)
  - IRRITABILITY [None]
